FAERS Safety Report 11094462 (Version 1)
Quarter: 2015Q2

REPORT INFORMATION
  Report Type: Spontaneous
  Country: US (occurrence: US)
  Receive Date: 20150506
  Receipt Date: 20150506
  Transmission Date: 20150821
  Serious: No
  Sender: FDA-Public Use
  Company Number: US-PFIZER INC-2015151212

PATIENT
  Sex: Female

DRUGS (1)
  1. IBRANCE [Suspect]
     Active Substance: PALBOCICLIB
     Dosage: UNK

REACTIONS (4)
  - Mood swings [Unknown]
  - Abdominal discomfort [Recovered/Resolved]
  - Oropharyngeal pain [Recovering/Resolving]
  - Blood count abnormal [Recovering/Resolving]

NARRATIVE: CASE EVENT DATE: 201504
